FAERS Safety Report 17683616 (Version 5)
Quarter: 2020Q4

REPORT INFORMATION
  Report Type: Other
  Country: US (occurrence: US)
  Receive Date: 20200420
  Receipt Date: 20201123
  Transmission Date: 20210113
  Serious: Yes (Other)
  Sender: FDA-Public Use
  Company Number: US-ROCHE-2510051

PATIENT
  Age: 60 Year
  Sex: Female
  Weight: 86.26 kg

DRUGS (14)
  1. OCREVUS [Suspect]
     Active Substance: OCRELIZUMAB
     Indication: RELAPSING MULTIPLE SCLEROSIS
     Dosage: DATE OF TREATMENT: 18/MAY/2018, 30/NOV/2018, 07/JUN/2019, 03/JAN/2020
     Route: 042
     Dates: start: 20180518
  2. REBIF [Concomitant]
     Active Substance: INTERFERON BETA-1A
  3. DILTIAZEM HYDROCHLORIDE. [Concomitant]
     Active Substance: DILTIAZEM HYDROCHLORIDE
  4. MAGNESIUM CITRATE. [Concomitant]
     Active Substance: MAGNESIUM CITRATE
     Route: 048
  5. OCREVUS [Suspect]
     Active Substance: OCRELIZUMAB
     Route: 065
     Dates: start: 20180511
  6. TYSABRI [Concomitant]
     Active Substance: NATALIZUMAB
  7. SERTRALINE HYDROCHLORIDE. [Concomitant]
     Active Substance: SERTRALINE HYDROCHLORIDE
  8. ARMODAFINIL. [Concomitant]
     Active Substance: ARMODAFINIL
  9. BACLOFEN. [Concomitant]
     Active Substance: BACLOFEN
  10. GABAPENTIN. [Concomitant]
     Active Substance: GABAPENTIN
  11. TECFIDERA [Concomitant]
     Active Substance: DIMETHYL FUMARATE
  12. MIRABEGRON [Concomitant]
     Active Substance: MIRABEGRON
  13. SOLIFENACIN [Concomitant]
     Active Substance: SOLIFENACIN
  14. OCREVUS [Suspect]
     Active Substance: OCRELIZUMAB
     Route: 042
     Dates: start: 20171027

REACTIONS (7)
  - Fall [Unknown]
  - Bone lesion excision [Recovered/Resolved]
  - Gait disturbance [Unknown]
  - Postoperative wound infection [Not Recovered/Not Resolved]
  - Tenoplasty [Recovered/Resolved]
  - Infective tenosynovitis [Unknown]
  - Tendon rupture [Recovered/Resolved]

NARRATIVE: CASE EVENT DATE: 20191209
